FAERS Safety Report 15081790 (Version 2)
Quarter: 2018Q3

REPORT INFORMATION
  Report Type: Spontaneous
  Country: US (occurrence: US)
  Receive Date: 20180628
  Receipt Date: 20180702
  Transmission Date: 20181010
  Serious: Yes (Other)
  Sender: FDA-Public Use
  Company Number: US-PFIZER INC-2018258192

PATIENT
  Age: 54 Year
  Sex: Female
  Weight: 49.89 kg

DRUGS (3)
  1. TRAMADOL. [Concomitant]
     Active Substance: TRAMADOL
     Dosage: UNK, AS NEEDED(SHE USUALLY DOES 150MG TO 200MG A DAY AS NEEDED)
  2. LYRICA [Suspect]
     Active Substance: PREGABALIN
     Indication: NEURALGIA
     Dosage: 150 MG, 2X/DAY
     Route: 048
     Dates: start: 201805
  3. LYRICA [Suspect]
     Active Substance: PREGABALIN
     Dosage: 225 MG, DAILY
     Route: 048

REACTIONS (6)
  - Urinary retention [Not Recovered/Not Resolved]
  - Abnormal faeces [Unknown]
  - Intentional product use issue [Unknown]
  - Dehydration [Recovering/Resolving]
  - Constipation [Not Recovered/Not Resolved]
  - Dry mouth [Not Recovered/Not Resolved]
